FAERS Safety Report 8108668 (Version 4)
Quarter: 2014Q1

REPORT INFORMATION
  Report Type: Spontaneous
  Country: US (occurrence: US)
  Receive Date: 20110826
  Receipt Date: 20140311
  Transmission Date: 20141002
  Serious: Yes (Hospitalization)
  Sender: FDA-Public Use
  Company Number: US-ALEXION-A201101274

PATIENT
  Age: 51 Year
  Sex: Male

DRUGS (2)
  1. SOLIRIS 300MG [Suspect]
     Indication: PAROXYSMAL NOCTURNAL HAEMOGLOBINURIA
     Dosage: 600 MG, QW
     Route: 042
     Dates: start: 20110609, end: 20110701
  2. SOLIRIS 300MG [Suspect]
     Dosage: 900 MG, Q2W
     Route: 042
     Dates: start: 20110708, end: 20110817

REACTIONS (4)
  - Osteonecrosis [Recovered/Resolved]
  - Condition aggravated [Recovered/Resolved]
  - Cellulitis [Recovered/Resolved]
  - Haemolysis [Recovered/Resolved]
